FAERS Safety Report 9969384 (Version 1)
Quarter: 2014Q1

REPORT INFORMATION
  Report Type: Spontaneous
  Country: US (occurrence: US)
  Receive Date: 20140306
  Receipt Date: 20140306
  Transmission Date: 20141002
  Serious: Yes (Other)
  Sender: FDA-Public Use
  Company Number: US-ASTRAZENECA-2014SE13315

PATIENT
  Age: 77 Year
  Sex: Male
  Weight: 95.3 kg

DRUGS (8)
  1. ATENOLOL [Suspect]
     Indication: BLOOD PRESSURE ABNORMAL
     Route: 048
     Dates: start: 2003
  2. LISINOPRIL [Suspect]
     Indication: BLOOD PRESSURE ABNORMAL
     Dosage: DAILY
     Route: 048
     Dates: start: 2007
  3. CRESTOR [Suspect]
     Indication: ATHEROSCLEROSIS PROPHYLAXIS
     Route: 048
     Dates: start: 2005, end: 2005
  4. CRESTOR [Suspect]
     Indication: ATHEROSCLEROSIS PROPHYLAXIS
     Route: 048
     Dates: start: 2005
  5. ASPIRIN [Concomitant]
     Indication: CARDIAC OPERATION
     Route: 048
     Dates: start: 2003
  6. EPSON SALT LOTION [Concomitant]
     Indication: LIMB DISCOMFORT
     Dates: start: 2013
  7. PRAVACHOL [Concomitant]
  8. LOVASTATIN [Concomitant]

REACTIONS (6)
  - Neuropathy peripheral [Unknown]
  - Hypoaesthesia [Recovering/Resolving]
  - Glucose tolerance impaired [Unknown]
  - Blood cholesterol increased [Unknown]
  - High density lipoprotein decreased [Unknown]
  - Intentional drug misuse [Unknown]
